FAERS Safety Report 6545802-0 (Version None)
Quarter: 2010Q1

REPORT INFORMATION
  Report Type: 
  Country: None (occurrence: None)
  Receive Date: 20100121
  Receipt Date: 20100114
  Transmission Date: 20100710
  Serious: Yes (Other)
  Sender: FDA-Public Use
  Company Number: US-AMGEN-QUU362039

PATIENT
  Sex: Female
  Weight: 46.8 kg

DRUGS (4)
  1. ENBREL [Suspect]
     Indication: JUVENILE ARTHRITIS
     Dates: start: 20060101
  2. SYNTHROID [Concomitant]
     Route: 048
  3. ZYRTEC [Concomitant]
     Route: 048
  4. VITAMIN TAB [Concomitant]
     Route: 048

REACTIONS (2)
  - INFERTILITY [None]
  - RHEUMATOID ARTHRITIS [None]
